FAERS Safety Report 15127403 (Version 2)
Quarter: 2018Q3

REPORT INFORMATION
  Report Type: Spontaneous
  Country: JP (occurrence: JP)
  Receive Date: 20180710
  Receipt Date: 20180808
  Transmission Date: 20181010
  Serious: Yes (Hospitalization, Disabling)
  Sender: FDA-Public Use
  Company Number: JP-ELI_LILLY_AND_COMPANY-JP201807000645

PATIENT
  Age: 79 Year
  Sex: Female
  Weight: 36 kg

DRUGS (9)
  1. FORTEO [Suspect]
     Active Substance: TERIPARATIDE
     Indication: OSTEOPOROSIS
     Dosage: UNK
     Route: 058
     Dates: start: 20180507, end: 20180629
  2. NORSPAN [Concomitant]
     Active Substance: BUPRENORPHINE
     Dosage: 5 MG, UNK
     Route: 062
     Dates: start: 20180508
  3. MICARDIS [Concomitant]
     Active Substance: TELMISARTAN
     Dosage: 1 DF, UNK
     Route: 048
  4. LOXONIN [Concomitant]
     Active Substance: LOXOPROFEN SODIUM
     Dosage: 120 MG, UNK
     Route: 048
  5. DICLOFENAC [Concomitant]
     Active Substance: DICLOFENAC
     Dosage: 12.5 MG, UNK
     Route: 054
  6. TRAMCET [Concomitant]
     Active Substance: ACETAMINOPHEN\TRAMADOL
     Dosage: 3 DF, UNK
     Route: 048
  7. TAKECAB [Concomitant]
     Active Substance: VONOPRAZAN FUMURATE
     Dosage: UNK
  8. ATELEC [Concomitant]
     Active Substance: CILNIDIPINE
     Dosage: 1 DF, UNK
     Route: 048
  9. NOVAMIN                            /00013301/ [Concomitant]
     Active Substance: PROCHLORPERAZINE
     Dosage: 15 MG, UNK
     Route: 048

REACTIONS (4)
  - Metastases to bone marrow [Unknown]
  - Metastases to spinal cord [Unknown]
  - Metastases to liver [Unknown]
  - Metastases to bone [Not Recovered/Not Resolved]

NARRATIVE: CASE EVENT DATE: 2018
